FAERS Safety Report 4383056-4 (Version None)
Quarter: 2004Q2

REPORT INFORMATION
  Report Type: 
  Country: None (occurrence: None)
  Receive Date: 20040615
  Receipt Date: 20031231
  Transmission Date: 20050107
  Serious: No
  Sender: FDA-Public Use
  Company Number: 2002134638US

PATIENT
  Age: 66 Year
  Sex: Female

DRUGS (2)
  1. ZYVOX [Suspect]
     Indication: SEPSIS
     Dosage: IV
     Route: 042
     Dates: start: 20020901, end: 20020901
  2. ZYVOX [Suspect]
     Indication: SEPSIS
     Dosage: ORAL
     Route: 048
     Dates: start: 20020901, end: 20020901

REACTIONS (11)
  - ABDOMINAL DISTENSION [None]
  - DYSGEUSIA [None]
  - DYSPEPSIA [None]
  - FATIGUE [None]
  - LOOSE STOOLS [None]
  - OESOPHAGEAL ULCER [None]
  - ORAL CANDIDIASIS [None]
  - PROCTITIS [None]
  - TONGUE DISCOLOURATION [None]
  - URTICARIA [None]
  - VAGINAL MYCOSIS [None]
